FAERS Safety Report 7846636-7 (Version None)
Quarter: 2011Q4

REPORT INFORMATION
  Report Type: 
  Country: None (occurrence: None)
  Receive Date: 20111025
  Receipt Date: 20111013
  Transmission Date: 20120403
  Serious: Yes (Hospitalization)
  Sender: FDA-Public Use
  Company Number: PHHY2011JP83397

PATIENT
  Age: 93 Year
  Sex: Female

DRUGS (3)
  1. LANSOPRAZOLE [Concomitant]
     Dosage: 15 MG, UNK
     Route: 048
  2. EXELON [Suspect]
     Indication: DEMENTIA ALZHEIMER'S TYPE
     Dosage: 9MG 1 PATCH DAILY
     Route: 062
  3. CANDESARTAN CILEXETIL [Concomitant]
     Dosage: 8 MG, UNK
     Route: 048
     Dates: end: 20110908

REACTIONS (1)
  - CEREBELLAR INFARCTION [None]
